FAERS Safety Report 20670294 (Version 2)
Quarter: 2023Q1

REPORT INFORMATION
  Report Type: Spontaneous
  Country: GR (occurrence: GR)
  Receive Date: 20220404
  Receipt Date: 20230328
  Transmission Date: 20230417
  Serious: Yes (Other)
  Sender: FDA-Public Use
  Company Number: GR-FARAN-2022-026844

PATIENT
  Age: 48 Year
  Sex: Female

DRUGS (8)
  1. PAROXETINE [Suspect]
     Active Substance: PAROXETINE
     Indication: Anxiety disorder
     Dosage: UNK
     Route: 065
     Dates: start: 202109
  2. PAROXETINE [Suspect]
     Active Substance: PAROXETINE
     Indication: Depression
  3. ALPRAZOLAM [Suspect]
     Active Substance: ALPRAZOLAM
     Indication: Depression
     Dosage: UNK
     Dates: start: 202109
  4. ALPRAZOLAM [Suspect]
     Active Substance: ALPRAZOLAM
     Indication: Anxiety disorder
  5. TRAZODONE HYDROCHLORIDE [Suspect]
     Active Substance: TRAZODONE HYDROCHLORIDE
     Indication: Anxiety disorder
     Dosage: 300 MILLIGRAM, QD
     Route: 065
     Dates: start: 202111
  6. TRAZODONE HYDROCHLORIDE [Suspect]
     Active Substance: TRAZODONE HYDROCHLORIDE
     Indication: Depression
  7. TRAZODONE HYDROCHLORIDE [Suspect]
     Active Substance: TRAZODONE HYDROCHLORIDE
     Indication: Depression
     Dosage: 150 MILLIGRAM, QD (1/4 OF THE PILL, EVERY TWO DAYS)
     Route: 065
  8. TRAZODONE HYDROCHLORIDE [Suspect]
     Active Substance: TRAZODONE HYDROCHLORIDE
     Indication: Anxiety disorder
     Dosage: UNK, 1/4 PILL, EVERY 2 DAYS
     Route: 065
     Dates: start: 20220216

REACTIONS (7)
  - Vertigo [Recovered/Resolved]
  - Depressed level of consciousness [Recovered/Resolved]
  - Dizziness [Recovered/Resolved]
  - Headache [Recovered/Resolved]
  - Somnolence [Recovered/Resolved]
  - Intentional product misuse [Unknown]
  - Therapy cessation [Unknown]
